FAERS Safety Report 4715535-1 (Version None)
Quarter: 2005Q3

REPORT INFORMATION
  Report Type: 
  Country: None (occurrence: None)
  Receive Date: 20050718
  Receipt Date: 20050706
  Transmission Date: 20060218
  Serious: Yes (Hospitalization)
  Sender: FDA-Public Use
  Company Number: ES-JNJFOC-20050506621

PATIENT
  Age: 46 Year
  Sex: Male

DRUGS (10)
  1. REMICADE [Suspect]
     Route: 042
  2. ETANERCEPT [Suspect]
     Route: 065
  3. METHOTREXATE [Concomitant]
  4. PREDNISONE [Concomitant]
  5. DICLOFENAC SODIUM [Concomitant]
  6. OMEPRAZOLE [Concomitant]
  7. FOLINIC ACID [Concomitant]
     Route: 065
  8. NIFEDIPINE [Concomitant]
     Route: 065
  9. CALCIUM GLUCONATE [Concomitant]
     Route: 065
  10. VITAMIN D [Concomitant]
     Route: 065

REACTIONS (1)
  - AMYOTROPHIC LATERAL SCLEROSIS [None]
